FAERS Safety Report 6618520-8 (Version None)
Quarter: 2010Q1

REPORT INFORMATION
  Report Type: 
  Country: None (occurrence: None)
  Receive Date: 20100223
  Receipt Date: 20091123
  Transmission Date: 20100710
  Serious: No
  Sender: FDA-Public Use
  Company Number: 8054146

PATIENT
  Sex: Male

DRUGS (2)
  1. CIMZIA [Suspect]
     Dosage: 400 MG SUBCUTANEOUS
     Route: 058
     Dates: start: 20090521
  2. CIMZIA [Suspect]

REACTIONS (4)
  - ABDOMINAL PAIN [None]
  - INFREQUENT BOWEL MOVEMENTS [None]
  - RETCHING [None]
  - VOMITING [None]
